FAERS Safety Report 13442464 (Version 1)
Quarter: 2017Q2

REPORT INFORMATION
  Report Type: Spontaneous
  Country: US (occurrence: US)
  Receive Date: 20170414
  Receipt Date: 20170414
  Transmission Date: 20170830
  Serious: No
  Sender: FDA-Public Use
  Company Number: US-TEVA-751235USA

PATIENT
  Age: 33 Year
  Sex: Female
  Weight: 122 kg

DRUGS (3)
  1. PROAIR HFA [Suspect]
     Active Substance: ALBUTEROL SULFATE
     Indication: ASTHMA
     Dosage: 4 DOSAGE FORMS DAILY; 1 PUFF FOUR TIMES A DAY
  2. FLUTICASONE. [Concomitant]
     Active Substance: FLUTICASONE
  3. TRIAMCINOLONE [Concomitant]
     Active Substance: TRIAMCINOLONE

REACTIONS (1)
  - Breath alcohol test positive [Unknown]
